FAERS Safety Report 8159458-7 (Version None)
Quarter: 2012Q1

REPORT INFORMATION
  Report Type: 
  Country: None (occurrence: None)
  Receive Date: 20120223
  Receipt Date: 20120215
  Transmission Date: 20120608
  Serious: Yes (Hospitalization)
  Sender: FDA-Public Use
  Company Number: US-BAYER-201031542NA

PATIENT
  Age: 30 Year
  Sex: Female
  Weight: 97.052 kg

DRUGS (9)
  1. LEXAPRO [Concomitant]
     Dosage: 20 MG, DAILY
  2. IBUPROFEN [Concomitant]
  3. LOPRESSOR [Concomitant]
  4. YAZ [Suspect]
     Indication: PRODUCT USED FOR UNKNOWN INDICATION
     Route: 048
  5. IRON [FERROUS SULFATE] [Concomitant]
  6. COLACE [Concomitant]
     Dosage: 100 MG, DAILY
  7. FERGON [Concomitant]
  8. METOPROLOL [Concomitant]
     Dosage: 100 MG, BID
  9. FERROUS SULFATE [Concomitant]
     Dosage: 324 MG, TID

REACTIONS (2)
  - DEEP VEIN THROMBOSIS [None]
  - PULMONARY EMBOLISM [None]
